FAERS Safety Report 9538512 (Version 2)
Quarter: 2013Q4

REPORT INFORMATION
  Report Type: Spontaneous
  Country: US (occurrence: None)
  Receive Date: 20130917
  Receipt Date: 20131001
  Transmission Date: 20140711
  Serious: Yes (Death)
  Sender: FDA-Public Use
  Company Number: SYM-2013-10651

PATIENT
  Age: 70 Year
  Sex: Female

DRUGS (1)
  1. XENAZINE (TETRABENAZINE) (25 MILLIGRAM TABLET) (TETRABENAZINE) [Suspect]
     Indication: PRODUCT USED FOR UNKNOWN INDICATION
     Dosage: 25 MG 2 TABLETS IN THE MORNING, 1 TABLET AT NOON, AND 1 TABLET AT 4:00PM, ORAL
     Route: 048
     Dates: start: 20090226

REACTIONS (1)
  - Death [None]
